FAERS Safety Report 19766959 (Version 1)
Quarter: 2021Q3

REPORT INFORMATION
  Report Type: Spontaneous
  Country: NL (occurrence: NL)
  Receive Date: 20210830
  Receipt Date: 20210830
  Transmission Date: 20211014
  Serious: Yes (Death, Hospitalization, Other)
  Sender: FDA-Public Use
  Company Number: NL-AMGEN-NLDSP2021131527

PATIENT
  Age: 80 Year
  Sex: Male

DRUGS (8)
  1. INSULIN DEGLUDEC;LIRAGLUTIDE [Concomitant]
     Dosage: 100 E/3.6 MG/ML, 32 E ONCE A DAY
  2. IRBESARTAN. [Concomitant]
     Active Substance: IRBESARTAN
     Dosage: 300 MILLIGRAM, QD
  3. DARBEPOETIN ALFA [Suspect]
     Active Substance: DARBEPOETIN ALFA
     Indication: PRODUCT USED FOR UNKNOWN INDICATION
     Dosage: UNK UNK, Q2WK
     Route: 065
  4. NIFEDIPINE. [Concomitant]
     Active Substance: NIFEDIPINE
     Dosage: 30 MILLIGRAM, QD
  5. PREGABALIN. [Concomitant]
     Active Substance: PREGABALIN
     Dosage: 75 MILLIGRAM, BID
  6. OMEPRAZOLE. [Concomitant]
     Active Substance: OMEPRAZOLE
     Dosage: 20 MILLIGRAM, QD
  7. BUMETANIDE. [Concomitant]
     Active Substance: BUMETANIDE
     Dosage: 4 MILLIGRAM, QD
  8. TAMSULOSIN [Concomitant]
     Active Substance: TAMSULOSIN
     Dosage: 0.4 MILLIGRAM, QD

REACTIONS (4)
  - Vena cava thrombosis [Unknown]
  - Renal failure [Unknown]
  - Death [Fatal]
  - Renal cell carcinoma [Unknown]
